FAERS Safety Report 9522977 (Version 3)
Quarter: 2014Q2

REPORT INFORMATION
  Report Type: Report from Study
  Country: US (occurrence: US)
  Receive Date: 20130913
  Receipt Date: 20140508
  Transmission Date: 20141212
  Serious: Yes (Other)
  Sender: FDA-Public Use
  Company Number: US-US-EMD SERONO, INC.-7220131

PATIENT
  Age: 37 Year
  Sex: Female

DRUGS (2)
  1. REBIF [Suspect]
     Indication: MULTIPLE SCLEROSIS
     Route: 058
     Dates: start: 20110105, end: 201211
  2. REBIF [Suspect]
     Route: 058
     Dates: start: 20130724

REACTIONS (3)
  - Placenta praevia [Unknown]
  - Maternal exposure timing unspecified [Unknown]
  - Normal newborn [Unknown]
